FAERS Safety Report 23981206 (Version 1)
Quarter: 2024Q2

REPORT INFORMATION
  Report Type: Spontaneous
  Country: JP (occurrence: JP)
  Receive Date: 20240617
  Receipt Date: 20240617
  Transmission Date: 20240716
  Serious: Yes (Other)
  Sender: FDA-Public Use
  Company Number: JP-CHEPLA-2024007498

PATIENT
  Age: 75 Year
  Sex: Female

DRUGS (1)
  1. GANCICLOVIR [Suspect]
     Active Substance: GANCICLOVIR
     Indication: Cytomegalovirus gastroenteritis
     Dosage: FOR 2 WEEKS
     Route: 042

REACTIONS (2)
  - Small intestinal stenosis [Recovered/Resolved]
  - Portal venous gas [Recovered/Resolved]
